FAERS Safety Report 15060475 (Version 1)
Quarter: 2018Q2

REPORT INFORMATION
  Report Type: Spontaneous
  Country: US (occurrence: US)
  Receive Date: 20180605
  Receipt Date: 20180605
  Transmission Date: 20180711
  Serious: Yes (Death)
  Sender: FDA-Public Use
  Company Number: None

PATIENT
  Age: 86 Year
  Sex: Female
  Weight: 53 kg

DRUGS (1)
  1. ENOXAPARIN 50MG [Suspect]
     Active Substance: ENOXAPARIN
     Indication: EMBOLISM VENOUS
     Route: 058

REACTIONS (7)
  - Dyspnoea [None]
  - Blood sodium increased [None]
  - Urine output decreased [None]
  - Hypotension [None]
  - Gastrointestinal haemorrhage [None]
  - Fluid overload [None]
  - Weight increased [None]

NARRATIVE: CASE EVENT DATE: 20180303
